FAERS Safety Report 5893864-6 (Version None)
Quarter: 2008Q3

REPORT INFORMATION
  Report Type: 
  Country: None (occurrence: None)
  Receive Date: 20080923
  Receipt Date: 20080625
  Transmission Date: 20090109
  Serious: No
  Sender: FDA-Public Use
  Company Number: US-ASTRAZENECA-2007UW26363

PATIENT
  Sex: Female
  Weight: 67.3 kg

DRUGS (4)
  1. SEROQUEL [Suspect]
     Indication: BIPOLAR I DISORDER
     Dosage: 10 MG/MORN AND 10MG/NIGHT
     Route: 048
     Dates: start: 20001001, end: 20051201
  2. SEROQUEL [Suspect]
     Indication: SLEEP DISORDER
     Dosage: 10 MG/MORN AND 10MG/NIGHT
     Route: 048
     Dates: start: 20001001, end: 20051201
  3. SEROQUEL [Suspect]
     Indication: ANXIETY
     Dosage: 10 MG/MORN AND 10MG/NIGHT
     Route: 048
     Dates: start: 20001001, end: 20051201
  4. ZYPREXA/SYMBYAX (OLANZAPINE) [Concomitant]
     Dosage: 10MG MORNING AND NIGHT
     Dates: start: 20050101, end: 20050101

REACTIONS (2)
  - DIABETES MELLITUS [None]
  - OBESITY [None]
